FAERS Safety Report 24319758 (Version 1)
Quarter: 2024Q3

REPORT INFORMATION
  Report Type: Spontaneous
  Country: US (occurrence: US)
  Receive Date: 20240914
  Receipt Date: 20240914
  Transmission Date: 20241016
  Serious: Yes (Other)
  Sender: SHILPA MEDICARE
  Company Number: US-KOANAAP-SML-US-2024-00916

PATIENT
  Age: 55 Year
  Sex: Female

DRUGS (3)
  1. GEMCITABINE [Suspect]
     Active Substance: GEMCITABINE
     Indication: Ovarian cancer stage III
  2. PEMETREXED [Suspect]
     Active Substance: PEMETREXED
     Indication: Ovarian cancer stage III
  3. DOXORUBICIN [Suspect]
     Active Substance: DOXORUBICIN
     Indication: Ovarian cancer stage III

REACTIONS (2)
  - Drug ineffective [Unknown]
  - Drug tolerance decreased [Unknown]
